FAERS Safety Report 26043416 (Version 1)
Quarter: 2025Q4

REPORT INFORMATION
  Report Type: Spontaneous
  Country: US (occurrence: US)
  Receive Date: 20251113
  Receipt Date: 20251113
  Transmission Date: 20260117
  Serious: Yes (Other)
  Sender: JOHNSON AND JOHNSON
  Company Number: US-JNJFOC-20251150362

PATIENT
  Sex: Male

DRUGS (1)
  1. XARELTO [Suspect]
     Active Substance: RIVAROXABAN
     Indication: Product used for unknown indication
     Dosage: NDC: 50458057930, PRESCRIPTION: 2071759, SERIAL NUMBER 50458-579-30, GTIN NUMBER 00350458579307
     Route: 048

REACTIONS (7)
  - Cerebrovascular accident [Unknown]
  - Myocardial infarction [Unknown]
  - Product physical issue [Unknown]
  - Product storage error [Unknown]
  - Wrong technique in device usage process [Unknown]
  - Product taste abnormal [Unknown]
  - Expired product administered [Unknown]
